FAERS Safety Report 7281405-0 (Version None)
Quarter: 2011Q1

REPORT INFORMATION
  Report Type: 
  Country: None (occurrence: None)
  Receive Date: 20110208
  Receipt Date: 20110128
  Transmission Date: 20110831
  Serious: Yes (Other)
  Sender: FDA-Public Use
  Company Number: ES-ELI_LILLY_AND_COMPANY-ES201006003722

PATIENT
  Sex: Male

DRUGS (4)
  1. CIALIS [Suspect]
     Dosage: 20 MG, AS NEEDED
     Route: 065
     Dates: start: 20060502
  2. OPENVAS [Concomitant]
     Dosage: UNK, UNKNOWN
     Route: 065
  3. ASTUDAL [Concomitant]
     Dosage: UNK, 2/D
     Route: 065
  4. AMILORIDE HCL AND HYDROCHLOROTHIAZIDE [Concomitant]
     Dosage: UNK, UNKNOWN
     Route: 065

REACTIONS (2)
  - HAEMATURIA [None]
  - BLOOD GLUCOSE INCREASED [None]
